FAERS Safety Report 6056612-5 (Version None)
Quarter: 2009Q1

REPORT INFORMATION
  Report Type: 
  Country: None (occurrence: None)
  Receive Date: 20090129
  Receipt Date: 20090119
  Transmission Date: 20090719
  Serious: Yes (Hospitalization, Other)
  Sender: FDA-Public Use
  Company Number: PHHO2007MX04256

PATIENT
  Sex: Female

DRUGS (1)
  1. DIOVAN HCT [Suspect]
     Indication: HYPERTENSION
     Dosage: 160/12.5 MG PER DAY
     Route: 048
     Dates: end: 20070101

REACTIONS (5)
  - HAEMODIALYSIS [None]
  - OEDEMA [None]
  - PERITONEAL DIALYSIS [None]
  - PERITONITIS [None]
  - RENAL FAILURE [None]
